FAERS Safety Report 7106473-8 (Version None)
Quarter: 2010Q4

REPORT INFORMATION
  Report Type: 
  Country: None (occurrence: None)
  Receive Date: 20101116
  Receipt Date: 20101105
  Transmission Date: 20110411
  Serious: Yes (Other)
  Sender: FDA-Public Use
  Company Number: US-PFIZER INC-2010112000

PATIENT
  Sex: Female
  Weight: 86.621 kg

DRUGS (3)
  1. LYRICA [Suspect]
     Indication: NERVE INJURY
     Dosage: 225 MG, 2X/DAY
     Route: 048
     Dates: start: 20090101
  2. MORPHINE [Concomitant]
     Dosage: UNK
  3. OXYCODONE [Concomitant]
     Dosage: UNK

REACTIONS (6)
  - HYPERHIDROSIS [None]
  - MALAISE [None]
  - NAUSEA [None]
  - TREMOR [None]
  - VITAMIN D DECREASED [None]
  - WITHDRAWAL SYNDROME [None]
